FAERS Safety Report 9913999 (Version 4)
Quarter: 2014Q2

REPORT INFORMATION
  Report Type: Spontaneous
  Country: US (occurrence: US)
  Receive Date: 20140220
  Receipt Date: 20140415
  Transmission Date: 20141212
  Serious: Yes (Hospitalization, Disabling, Other)
  Sender: FDA-Public Use
  Company Number: US-009507513-1008USA02804

PATIENT
  Sex: Male
  Weight: 60.77 kg

DRUGS (3)
  1. FOSAMAX [Suspect]
     Indication: OSTEOPENIA
     Dosage: UNK
     Route: 048
     Dates: start: 2007
  2. FOSAMAX [Suspect]
     Dosage: UNK
     Route: 048
     Dates: end: 19980625
  3. FOSAMAX PLUS D [Suspect]
     Dosage: 70MG-2800UNITS QW
     Route: 048

REACTIONS (71)
  - Femur fracture [Unknown]
  - Intramedullary rod insertion [Unknown]
  - Gastric cancer [Not Recovered/Not Resolved]
  - Gastrectomy [Unknown]
  - Peroneal muscular atrophy [Not Recovered/Not Resolved]
  - Fracture nonunion [Unknown]
  - Pneumonia [Unknown]
  - Thalamic infarction [Unknown]
  - Bone graft [Unknown]
  - Knee arthroplasty [Unknown]
  - Knee arthroplasty [Unknown]
  - Tibia fracture [Unknown]
  - Cerebrovascular accident [Unknown]
  - Pulmonary embolism [Unknown]
  - Surgery [Unknown]
  - Respiratory failure [Unknown]
  - Cerebrovascular accident [Unknown]
  - Cellulitis [Unknown]
  - Sepsis [Unknown]
  - Impaired healing [Unknown]
  - Bursa disorder [Recovered/Resolved]
  - Bursa removal [Unknown]
  - Cataract operation [Unknown]
  - Cataract operation [Unknown]
  - Spinal deformity [Unknown]
  - Chronic obstructive pulmonary disease [Unknown]
  - Hypertension [Unknown]
  - Anaemia macrocytic [Unknown]
  - Thrombocytosis [Unknown]
  - Transient ischaemic attack [Unknown]
  - Cardiac failure congestive [Unknown]
  - Anaemia of chronic disease [Unknown]
  - Osteoarthritis [Unknown]
  - Atelectasis [Unknown]
  - Obstructive airways disorder [Unknown]
  - Fibula fracture [Unknown]
  - Osteoporosis [Unknown]
  - Iron deficiency anaemia [Unknown]
  - Rheumatoid arthritis [Unknown]
  - Rotator cuff syndrome [Unknown]
  - Benign prostatic hyperplasia [Unknown]
  - Hyperlipidaemia [Unknown]
  - Hypotension [Recovered/Resolved]
  - Urinary hesitation [Unknown]
  - Urinary incontinence [Unknown]
  - Dyspnoea exertional [Unknown]
  - Insomnia [Unknown]
  - Impaired healing [Not Recovered/Not Resolved]
  - Supraventricular tachycardia [Unknown]
  - Essential hypertension [Unknown]
  - Neuropathy peripheral [Unknown]
  - Skin discolouration [Not Recovered/Not Resolved]
  - Foot fracture [Unknown]
  - Major depression [Unknown]
  - Tinea cruris [Unknown]
  - Coronary artery disease [Unknown]
  - Hyponatraemia [Unknown]
  - Staphylococcal infection [Unknown]
  - Malnutrition [Unknown]
  - Orthostatic hypotension [Unknown]
  - Bursa removal [Unknown]
  - Toe amputation [Unknown]
  - Foot fracture [Unknown]
  - Foot deformity [Unknown]
  - Limb deformity [Unknown]
  - Lung infiltration [Unknown]
  - Spinal compression fracture [Unknown]
  - Drug ineffective [Unknown]
  - Dyspepsia [Unknown]
  - Constipation [Unknown]
  - Dyspepsia [Unknown]
